FAERS Safety Report 10413213 (Version 1)
Quarter: 2014Q3

REPORT INFORMATION
  Report Type: Spontaneous
  Country: US (occurrence: None)
  Receive Date: 20140825
  Receipt Date: 20140825
  Transmission Date: 20150326
  Serious: Yes (Other)
  Sender: FDA-Public Use
  Company Number: AUR-APU-2014-08797

PATIENT
  Sex: Male

DRUGS (2)
  1. METFORMIN HYDROCHLORIDE. [Suspect]
     Active Substance: METFORMIN HYDROCHLORIDE
     Indication: DIABETES MELLITUS
     Dates: start: 20140810, end: 20140812
  2. METOPRLOL(METOPROLOL) [Concomitant]

REACTIONS (9)
  - Product odour abnormal [None]
  - Product quality issue [None]
  - Fall [None]
  - Dysstasia [None]
  - Headache [None]
  - Myalgia [None]
  - Pain in extremity [None]
  - Spinal pain [None]
  - Malaise [None]

NARRATIVE: CASE EVENT DATE: 20140812
